FAERS Safety Report 13284456 (Version 5)
Quarter: 2018Q1

REPORT INFORMATION
  Report Type: Other
  Country: US (occurrence: US)
  Receive Date: 20170301
  Receipt Date: 20180104
  Transmission Date: 20180508
  Serious: Yes (Death, Hospitalization, Other)
  Sender: FDA-Public Use
  Company Number: US-UNITED THERAPEUTICS-UNT-2017-002272

PATIENT
  Age: 21 Year
  Sex: Female
  Weight: 63.49 kg

DRUGS (5)
  1. REMODULIN [Suspect]
     Active Substance: TREPROSTINIL
     Dosage: 0.053 ?G/KG, CONTINUING
     Route: 058
  2. REMODULIN [Suspect]
     Active Substance: TREPROSTINIL
     Indication: PULMONARY ARTERIAL HYPERTENSION
     Dosage: 0.047 ?G/KG, CONTINUING
     Route: 058
     Dates: start: 20160627
  3. REMODULIN [Suspect]
     Active Substance: TREPROSTINIL
     Dosage: UNK
     Route: 058
  4. REMODULIN [Suspect]
     Active Substance: TREPROSTINIL
     Dosage: UNK
     Route: 058
  5. REMODULIN [Suspect]
     Active Substance: TREPROSTINIL
     Indication: PULMONARY HYPERTENSION
     Dosage: 0.044 ?G/KG, CONTINUING
     Route: 058
     Dates: start: 20160531

REACTIONS (5)
  - Sepsis [Fatal]
  - Acute promyelocytic leukaemia [Not Recovered/Not Resolved]
  - Pulmonary hypertension [Not Recovered/Not Resolved]
  - Multiple organ dysfunction syndrome [Fatal]
  - Acute respiratory distress syndrome [Unknown]

NARRATIVE: CASE EVENT DATE: 20171119
